FAERS Safety Report 20867670 (Version 1)
Quarter: 2022Q2

REPORT INFORMATION
  Report Type: Spontaneous
  Country: US (occurrence: None)
  Receive Date: 20220524
  Receipt Date: 20220524
  Transmission Date: 20220721
  Serious: No
  Sender: FDA-Public Use
  Company Number: None

PATIENT
  Age: 78 Year
  Sex: Female
  Weight: 147.3 kg

DRUGS (8)
  1. IBRANCE [Suspect]
     Active Substance: PALBOCICLIB
     Indication: Benign breast neoplasm
     Dosage: OTHER FREQUENCY : 21DO7DOFF;?
     Route: 048
     Dates: start: 20210209
  2. CALCIUM CARBONATE [Concomitant]
     Active Substance: CALCIUM CARBONATE
  3. VITAMIN D [Concomitant]
  4. HYDROCHOLOROTHIAZIDE [Concomitant]
  5. LETROZOLE [Concomitant]
  6. OMEPRAZOLE [Concomitant]
  7. ONDANSETRON [Concomitant]
  8. VITAMIN D3 [Concomitant]

REACTIONS (2)
  - Full blood count abnormal [None]
  - Therapy interrupted [None]
